FAERS Safety Report 7244659-2 (Version None)
Quarter: 2011Q1

REPORT INFORMATION
  Report Type: 
  Country: None (occurrence: None)
  Receive Date: 20110125
  Receipt Date: 20101110
  Transmission Date: 20110831
  Serious: No
  Sender: FDA-Public Use
  Company Number: US-MYLANLABS-2010S1020913

PATIENT
  Age: 40 Year
  Sex: Female
  Weight: 63.5 kg

DRUGS (2)
  1. BUPROPION HYDROCHLORIDE EXTENDED-RELEASE TABLETS USP (XL) [Suspect]
     Indication: DEPRESSION
     Route: 048
     Dates: start: 20101101
  2. LAMICTAL [Concomitant]
     Indication: DEPRESSION
     Dates: start: 20050101

REACTIONS (5)
  - TREMOR [None]
  - ANXIETY [None]
  - PALPITATIONS [None]
  - DRUG INEFFECTIVE [None]
  - DEPRESSION [None]
